FAERS Safety Report 8954328 (Version 2)
Quarter: 2013Q1

REPORT INFORMATION
  Report Type: Spontaneous
  Country: US (occurrence: US)
  Receive Date: 20121207
  Receipt Date: 20130220
  Transmission Date: 20140127
  Serious: No
  Sender: FDA-Public Use
  Company Number: US-VERTEX PHARMACEUTICALS INC.-2012-025593

PATIENT
  Age: 40 Year
  Sex: Male
  Weight: 100 kg

DRUGS (4)
  1. INCIVEK [Suspect]
     Indication: HEPATITIS C
     Dosage: 750 MG, TID
     Route: 048
     Dates: start: 20121121, end: 20130213
  2. PEGASYS [Suspect]
     Indication: HEPATITIS C
     Dosage: 180 ?G, QW
     Route: 058
     Dates: start: 20121120
  3. RIBAVIRIN [Suspect]
     Indication: HEPATITIS C
     Dosage: 400MG AM, 200MG PM, QD
     Route: 048
     Dates: start: 20121121
  4. ULORIC [Concomitant]
     Indication: BLOOD URIC ACID INCREASED
     Route: 048

REACTIONS (3)
  - Headache [Not Recovered/Not Resolved]
  - Decreased appetite [Not Recovered/Not Resolved]
  - Pruritus [Not Recovered/Not Resolved]
